FAERS Safety Report 18434675 (Version 1)
Quarter: 2020Q4

REPORT INFORMATION
  Report Type: Spontaneous
  Country: US (occurrence: US)
  Receive Date: 20201028
  Receipt Date: 20201028
  Transmission Date: 20210114
  Serious: Yes (Other)
  Sender: FDA-Public Use
  Company Number: US-LUPIN PHARMACEUTICALS INC.-2020-07718

PATIENT
  Age: 41 Year
  Sex: Female
  Weight: 179.6 kg

DRUGS (1)
  1. LOSARTAN POTASSIUM AND HYDROCHLOROTHIAZIDE [Suspect]
     Active Substance: HYDROCHLOROTHIAZIDE\LOSARTAN POTASSIUM
     Indication: HYPERTENSION
     Dosage: 1 DOSAGE FORM, QD
     Route: 048
     Dates: start: 20201006, end: 20201015

REACTIONS (13)
  - Faeces discoloured [Recovering/Resolving]
  - Abdominal pain lower [Recovering/Resolving]
  - Musculoskeletal pain [Recovering/Resolving]
  - Therapeutic product cross-reactivity [Recovering/Resolving]
  - Product substitution issue [Unknown]
  - Melaena [Recovering/Resolving]
  - Nausea [Recovering/Resolving]
  - Joint swelling [Recovering/Resolving]
  - Weight fluctuation [Unknown]
  - Abdominal pain [Recovering/Resolving]
  - Joint dislocation [Recovering/Resolving]
  - Arthralgia [Recovering/Resolving]
  - Rectal haemorrhage [Recovering/Resolving]

NARRATIVE: CASE EVENT DATE: 20201006
